FAERS Safety Report 5755400-4 (Version None)
Quarter: 2008Q2

REPORT INFORMATION
  Report Type: 
  Country: None (occurrence: None)
  Receive Date: 20080529
  Receipt Date: 20080529
  Transmission Date: 20081010
  Serious: Yes (Other)
  Sender: FDA-Public Use
  Company Number: None

PATIENT
  Age: 60 Year
  Sex: Male
  Weight: 131.7 kg

DRUGS (1)
  1. FUROSEMIDE [Suspect]
     Indication: DIURETIC THERAPY
     Dosage: 40 MG AM PO
     Route: 048
     Dates: start: 20080424, end: 20080430

REACTIONS (1)
  - RASH PAPULAR [None]
